FAERS Safety Report 5160127-6 (Version None)
Quarter: 2006Q4

REPORT INFORMATION
  Report Type: 
  Country: None (occurrence: None)
  Receive Date: 20061129
  Receipt Date: 20060613
  Transmission Date: 20070319
  Serious: Yes (Other)
  Sender: FDA-Public Use
  Company Number: GB-NOVOPROD-254058

PATIENT
  Age: 61 Year
  Sex: Male
  Weight: 74 kg

DRUGS (8)
  1. LEVEMIR [Suspect]
     Dosage: 20 IU, QD
     Dates: start: 20060520, end: 20060522
  2. LEVEMIR [Suspect]
     Dosage: 26 IU, QD
     Dates: start: 20060527, end: 20060529
  3. NOVORAPID PENFILL [Suspect]
     Indication: DIABETES MELLITUS INSULIN-DEPENDENT
     Dosage: 26 IU, QD
     Dates: start: 20060520, end: 20060522
  4. NOVORAPID PENFILL [Suspect]
     Dosage: 26 IU, QD
     Dates: start: 20060527, end: 20060529
  5. NOVOMIX 30 [Suspect]
     Dosage: 46 IU, QD
     Dates: start: 20060617, end: 20060618
  6. ACTRAPID [Concomitant]
     Indication: DIABETES MELLITUS INSULIN-DEPENDENT
     Dates: start: 20060718
  7. LANTUS [Concomitant]
     Indication: DIABETES MELLITUS INSULIN-DEPENDENT
     Dates: start: 20060718
  8. HUMALOG [Concomitant]

REACTIONS (1)
  - INFLUENZA LIKE ILLNESS [None]
